FAERS Safety Report 25073295 (Version 1)
Quarter: 2025Q1

REPORT INFORMATION
  Report Type: Spontaneous
  Country: IT (occurrence: IT)
  Receive Date: 20250313
  Receipt Date: 20250313
  Transmission Date: 20250409
  Serious: Yes (Other)
  Sender: SAMSUNG BIOEPIS
  Company Number: None

PATIENT
  Age: 66 Year
  Sex: Male
  Weight: 61 kg

DRUGS (2)
  1. TRASTUZUMAB [Suspect]
     Active Substance: TRASTUZUMAB
     Indication: Adenocarcinoma of salivary gland
     Route: 042
     Dates: start: 20240617, end: 20240617
  2. TAXOTERE [Suspect]
     Active Substance: DOCETAXEL
     Indication: Adenocarcinoma of salivary gland
     Route: 042
     Dates: start: 20240617, end: 20240617

REACTIONS (3)
  - Neutropenia [Recovering/Resolving]
  - Haemoglobin decreased [Recovering/Resolving]
  - Off label use [Recovering/Resolving]

NARRATIVE: CASE EVENT DATE: 20240617
